FAERS Safety Report 6538981-2 (Version None)
Quarter: 2010Q1

REPORT INFORMATION
  Report Type: 
  Country: None (occurrence: None)
  Receive Date: 20100115
  Receipt Date: 20100112
  Transmission Date: 20100710
  Serious: Yes (Life-Threatening)
  Sender: FDA-Public Use
  Company Number: DE-BRISTOL-MYERS SQUIBB COMPANY-14929731

PATIENT
  Age: 44 Year
  Sex: Male
  Weight: 101 kg

DRUGS (7)
  1. ENTECAVIR [Suspect]
     Indication: HEPATITIS B
     Route: 048
     Dates: start: 20080201
  2. ETANERCEPT [Suspect]
     Indication: PSORIATIC ARTHROPATHY
     Route: 058
     Dates: start: 20080301
  3. LEFLUNOMIDE [Suspect]
     Indication: PSORIATIC ARTHROPATHY
     Route: 048
     Dates: start: 20070201, end: 20090101
  4. PREDNISOLONE [Concomitant]
     Indication: PSORIATIC ARTHROPATHY
     Dosage: 1DOSAGEFORM=5-20MG
     Route: 048
     Dates: start: 20060101
  5. METHOTREXATE [Concomitant]
     Indication: PSORIATIC ARTHROPATHY
     Dosage: SEP06-SEP07,RESTARTED ON JAN09
     Route: 048
     Dates: start: 20060901
  6. FOLIC ACID [Concomitant]
  7. COLECALCIFEROL [Concomitant]

REACTIONS (2)
  - GASTRIC CANCER [None]
  - GASTRIC ULCER [None]
